FAERS Safety Report 18150902 (Version 1)
Quarter: 2020Q3

REPORT INFORMATION
  Report Type: Other
  Country: CA (occurrence: CA)
  Receive Date: 20200814
  Receipt Date: 20200814
  Transmission Date: 20201103
  Serious: Yes (Hospitalization, Other)
  Sender: FDA-Public Use
  Company Number: CA-APOTEX-2020AP015617

PATIENT
  Age: 59 Year
  Sex: Female

DRUGS (4)
  1. TIOTROPIUM [Suspect]
     Active Substance: TIOTROPIUM
     Indication: PRODUCT USED FOR UNKNOWN INDICATION
     Dosage: 2 DOSAGE FORM, QD
     Route: 065
  2. VENTOLIN [Suspect]
     Active Substance: ALBUTEROL SULFATE
     Indication: PRODUCT USED FOR UNKNOWN INDICATION
     Dosage: UNK
     Route: 065
  3. SALBUTAMOL/IPRATROPIUM [Suspect]
     Active Substance: ALBUTEROL\IPRATROPIUM
     Indication: PRODUCT USED FOR UNKNOWN INDICATION
     Dosage: 6 DOSAGE FORM, QD
     Route: 065
  4. FLUTICASONE PROPIONATE;SALMETEROL XINAFOATE [Suspect]
     Active Substance: FLUTICASONE PROPIONATE\SALMETEROL XINAFOATE
     Indication: PRODUCT USED FOR UNKNOWN INDICATION
     Dosage: UNK
     Route: 065

REACTIONS (13)
  - Dyspnoea [Unknown]
  - Wheezing [Unknown]
  - Blood count abnormal [Unknown]
  - Sputum discoloured [Unknown]
  - Systemic inflammatory response syndrome [Unknown]
  - Chest discomfort [Unknown]
  - Respiration abnormal [Unknown]
  - Asthma [Unknown]
  - Eosinophil count increased [Unknown]
  - Pneumonia viral [Unknown]
  - Prolonged expiration [Unknown]
  - Blood immunoglobulin E increased [Unknown]
  - Productive cough [Unknown]
